FAERS Safety Report 8136543-7 (Version None)
Quarter: 2012Q1

REPORT INFORMATION
  Report Type: 
  Country: None (occurrence: None)
  Receive Date: 20120214
  Receipt Date: 20120208
  Transmission Date: 20120608
  Serious: Yes (Hospitalization, Other)
  Sender: FDA-Public Use
  Company Number: PHEH2012US001735

PATIENT
  Sex: Female

DRUGS (14)
  1. SYNTHROID [Concomitant]
  2. CITALOPRAM HYDROBROMIDE [Concomitant]
  3. GILENYA [Suspect]
     Indication: MULTIPLE SCLEROSIS
     Dosage: 0.5 MG, QD
     Route: 048
     Dates: start: 20120111
  4. FUROSEMIDE [Concomitant]
  5. CELEXA [Concomitant]
     Dosage: UNK UKN, UNK
  6. OMEPRAZOLE [Concomitant]
  7. BONIVA [Concomitant]
     Dosage: UNK UKN, UNK
  8. CALCIUM WITH VITAMIN D [Concomitant]
  9. RANITIDINE [Concomitant]
  10. BACLOFEN [Concomitant]
  11. DONEPEZIL HCL [Concomitant]
     Dosage: UNK UKN, UNK
  12. CELEBREX [Concomitant]
  13. NAMENDA [Concomitant]
  14. ARICEPT [Concomitant]
     Dosage: UNK UKN, UNK

REACTIONS (4)
  - CHEST PAIN [None]
  - NASOPHARYNGITIS [None]
  - ARTHRITIS [None]
  - PULMONARY EMBOLISM [None]
